FAERS Safety Report 19509362 (Version 1)
Quarter: 2021Q3

REPORT INFORMATION
  Report Type: Spontaneous
  Country: US (occurrence: US)
  Receive Date: 20210709
  Receipt Date: 20210709
  Transmission Date: 20211014
  Serious: No
  Sender: FDA-Public Use
  Company Number: US-PRINSTON PHARMACEUTICAL INC.-2020PRN00245

PATIENT
  Sex: Male
  Weight: 96.15 kg

DRUGS (6)
  1. DAPSONE. [Concomitant]
     Active Substance: DAPSONE
     Dosage: 25 MG
  2. OMEPRAZOLE. [Concomitant]
     Active Substance: OMEPRAZOLE
  3. LISINOPRIL. [Suspect]
     Active Substance: LISINOPRIL
     Indication: HYPERTENSION
     Dosage: 40 MG, 1X/DAY
     Route: 048
     Dates: start: 202004
  4. DAPSONE. [Concomitant]
     Active Substance: DAPSONE
     Dosage: 50 MG
  5. SIMVASTATIN. [Concomitant]
     Active Substance: SIMVASTATIN
  6. DAPSONE. [Concomitant]
     Active Substance: DAPSONE
     Dosage: 25 MG, 1X/DAY

REACTIONS (3)
  - Diarrhoea [Not Recovered/Not Resolved]
  - Pruritus [Recovered/Resolved]
  - Abdominal pain [Not Recovered/Not Resolved]

NARRATIVE: CASE EVENT DATE: 2020
